FAERS Safety Report 21261846 (Version 2)
Quarter: 2023Q2

REPORT INFORMATION
  Report Type: Spontaneous
  Country: US (occurrence: US)
  Receive Date: 20220827
  Receipt Date: 20230601
  Transmission Date: 20230722
  Serious: No
  Sender: FDA-Public Use
  Company Number: US-LUPIN PHARMACEUTICALS INC.-2022-10567

PATIENT

DRUGS (1)
  1. ALBUTEROL SULFATE [Suspect]
     Active Substance: ALBUTEROL SULFATE
     Indication: Bronchitis
     Dosage: UNK, 2 PUFFS EVERY 6 HOURS
     Dates: start: 20220801

REACTIONS (4)
  - Wrong technique in product usage process [Unknown]
  - Device information output issue [Unknown]
  - Wrong technique in device usage process [Unknown]
  - No adverse event [Unknown]
